FAERS Safety Report 6076816-5 (Version None)
Quarter: 2009Q1

REPORT INFORMATION
  Report Type: 
  Country: None (occurrence: None)
  Receive Date: 20090213
  Receipt Date: 20090205
  Transmission Date: 20090719
  Serious: Yes (Hospitalization)
  Sender: FDA-Public Use
  Company Number: US-BIOGENIDEC-2008BI013284

PATIENT
  Age: 57 Year
  Sex: Female
  Weight: 74 kg

DRUGS (1)
  1. TYSABRI [Suspect]
     Indication: MULTIPLE SCLEROSIS
     Route: 042
     Dates: start: 20080207

REACTIONS (6)
  - ANKLE FRACTURE [None]
  - BLADDER PROLAPSE [None]
  - CATARACT [None]
  - FALL [None]
  - HEMICEPHALALGIA [None]
  - SINUSITIS [None]
